FAERS Safety Report 26088070 (Version 1)
Quarter: 2025Q4

REPORT INFORMATION
  Report Type: Report from Study
  Country: US (occurrence: US)
  Receive Date: 20251125
  Receipt Date: 20251125
  Transmission Date: 20260118
  Serious: Yes (Other)
  Sender: ABBVIE
  Company Number: US-ABBVIE-6557146

PATIENT
  Age: 71 Year
  Sex: Female

DRUGS (1)
  1. RINVOQ [Suspect]
     Active Substance: UPADACITINIB
     Indication: Product used for unknown indication
     Dosage: DRUG STOP DATE: 2025
     Route: 048
     Dates: start: 20251001

REACTIONS (2)
  - Large intestine perforation [Recovering/Resolving]
  - Diverticulitis [Unknown]

NARRATIVE: CASE EVENT DATE: 20251019
